FAERS Safety Report 12749030 (Version 4)
Quarter: 2021Q2

REPORT INFORMATION
  Report Type: Report from Study
  Country: US (occurrence: US)
  Receive Date: 20160915
  Receipt Date: 20210628
  Transmission Date: 20210716
  Serious: Yes (Other)
  Sender: FDA-Public Use
  Company Number: US-ASTELLAS-2016US011581

PATIENT
  Age: 78 Year
  Sex: Male

DRUGS (2)
  1. ENZALUTAMIDE [Suspect]
     Active Substance: ENZALUTAMIDE
     Route: 048
     Dates: start: 20160325, end: 20210611
  2. ENZALUTAMIDE [Suspect]
     Active Substance: ENZALUTAMIDE
     Indication: HORMONE-REFRACTORY PROSTATE CANCER
     Route: 048
     Dates: start: 201602

REACTIONS (10)
  - Hip fracture [Unknown]
  - Product availability issue [Unknown]
  - Myocardial infarction [Unknown]
  - Osteomyelitis [Not Recovered/Not Resolved]
  - Fall [Unknown]
  - Gait disturbance [Recovering/Resolving]
  - Arthritis [Unknown]
  - Limb discomfort [Recovering/Resolving]
  - Nasopharyngitis [Unknown]
  - Muscle spasms [Unknown]

NARRATIVE: CASE EVENT DATE: 20180814
